FAERS Safety Report 18866354 (Version 1)
Quarter: 2021Q1

REPORT INFORMATION
  Report Type: Spontaneous
  Country: GB (occurrence: GB)
  Receive Date: 20210209
  Receipt Date: 20210209
  Transmission Date: 20210420
  Serious: Yes (Other)
  Sender: FDA-Public Use
  Company Number: GB-TEVA-2021-GB-1877724

PATIENT
  Sex: Female

DRUGS (2)
  1. AJOVY [Suspect]
     Active Substance: FREMANEZUMAB-VFRM
     Indication: MIGRAINE
     Dosage: ONE PREFILLED INJECTION
     Route: 065
     Dates: start: 20200927
  2. BOTOX [Suspect]
     Active Substance: ONABOTULINUMTOXINA
     Route: 065

REACTIONS (12)
  - Drug ineffective [Unknown]
  - Visual impairment [Unknown]
  - Sensory loss [Unknown]
  - Migraine [Unknown]
  - Hypersomnia [Unknown]
  - Product dose omission issue [Unknown]
  - Vomiting [Unknown]
  - Incorrect route of product administration [Unknown]
  - Headache [Unknown]
  - Injection site erythema [Unknown]
  - Injection site pain [Unknown]
  - Accidental exposure to product [Unknown]

NARRATIVE: CASE EVENT DATE: 2020
